FAERS Safety Report 22187134 (Version 1)
Quarter: 2023Q2

REPORT INFORMATION
  Report Type: Spontaneous
  Country: BG (occurrence: BG)
  Receive Date: 20230407
  Receipt Date: 20230407
  Transmission Date: 20230722
  Serious: Yes (Hospitalization, Other)
  Sender: FDA-Public Use
  Company Number: BG-BRISTOL-MYERS SQUIBB COMPANY-2023-048752

PATIENT
  Age: 65 Year
  Sex: Male

DRUGS (3)
  1. OPDIVO [Suspect]
     Active Substance: NIVOLUMAB
     Indication: Renal cell carcinoma
     Dosage: 4 INDUCTION COURSES WITH OPDIVO 3MG/KG AND YERVOY 1MG/KG
  2. OPDIVO [Suspect]
     Active Substance: NIVOLUMAB
     Dosage: EVERY 2 WEEKS
  3. YERVOY [Suspect]
     Active Substance: IPILIMUMAB
     Indication: Renal cell carcinoma
     Dosage: 4 INDUCTION COURSES WITH OPDIVO 3MG/KG AND YERVOY 1MG/KG

REACTIONS (2)
  - Toxic neuropathy [Not Recovered/Not Resolved]
  - Lumbar radiculopathy [Not Recovered/Not Resolved]
